FAERS Safety Report 9690752 (Version 1)
Quarter: 2013Q4

REPORT INFORMATION
  Report Type: Spontaneous
  Country: US (occurrence: None)
  Receive Date: 20131114
  Receipt Date: 20131114
  Transmission Date: 20140711
  Serious: No
  Sender: FDA-Public Use
  Company Number: None

PATIENT
  Age: 54 Year
  Sex: Male
  Weight: 106 kg

DRUGS (1)
  1. PRADAXA [Suspect]
     Route: 048
     Dates: start: 20131107, end: 20131112

REACTIONS (1)
  - Deep vein thrombosis [None]
